FAERS Safety Report 17454959 (Version 2)
Quarter: 2020Q1

REPORT INFORMATION
  Report Type: Spontaneous
  Country: US (occurrence: US)
  Receive Date: 20200225
  Receipt Date: 20200304
  Transmission Date: 20200409
  Serious: Yes (Other)
  Sender: FDA-Public Use
  Company Number: US-PFIZER INC-2020078825

PATIENT
  Age: 77 Year
  Sex: Female
  Weight: 72.12 kg

DRUGS (2)
  1. PREMARIN [Suspect]
     Active Substance: ESTROGENS, CONJUGATED
     Dosage: LOWERED DOSE
  2. PREMARIN [Suspect]
     Active Substance: ESTROGENS, CONJUGATED
     Indication: HYSTERECTOMY
     Dosage: 0.6 MG, UNK
     Route: 048
     Dates: start: 1985

REACTIONS (7)
  - Depression [Unknown]
  - Fatigue [Unknown]
  - Loss of personal independence in daily activities [Unknown]
  - Incorrect product administration duration [Unknown]
  - Irritability [Unknown]
  - Drug dependence [Unknown]
  - Incontinence [Unknown]
